FAERS Safety Report 25159201 (Version 1)
Quarter: 2025Q2

REPORT INFORMATION
  Report Type: Spontaneous
  Country: GB (occurrence: GB)
  Receive Date: 20250404
  Receipt Date: 20250404
  Transmission Date: 20250717
  Serious: No
  Sender: ALKEM
  Company Number: None

PATIENT
  Age: 17 Year
  Sex: Male

DRUGS (4)
  1. ARIPIPRAZOLE [Suspect]
     Active Substance: ARIPIPRAZOLE
     Indication: Agitation
     Route: 030
     Dates: start: 20240726
  2. ARIPIPRAZOLE [Suspect]
     Active Substance: ARIPIPRAZOLE
     Indication: Psychotic disorder
     Route: 030
  3. LORAZEPAM [Concomitant]
     Active Substance: LORAZEPAM
     Indication: Agitation
     Route: 065
  4. PROMETHAZINE [Concomitant]
     Active Substance: PROMETHAZINE HYDROCHLORIDE
     Indication: Agitation
     Route: 065

REACTIONS (2)
  - Sexually inappropriate behaviour [Unknown]
  - Hypersexuality [Not Recovered/Not Resolved]

NARRATIVE: CASE EVENT DATE: 20240928
